FAERS Safety Report 7122416-5 (Version None)
Quarter: 2010Q4

REPORT INFORMATION
  Report Type: 
  Country: None (occurrence: None)
  Receive Date: 20101122
  Receipt Date: 20101122
  Transmission Date: 20110411
  Serious: Yes (Other)
  Sender: FDA-Public Use
  Company Number: None

PATIENT
  Age: 25 Year
  Sex: Female
  Weight: 75 kg

DRUGS (4)
  1. SUMATRIPTAN SUCCINATE [Suspect]
     Indication: MIGRAINE
     Dosage: 50 MG 2 TIMES 047
     Route: 048
     Dates: start: 20101005
  2. TRI-SPRINTEC [Concomitant]
  3. ZYRTEC [Concomitant]
  4. NASONEX [Concomitant]

REACTIONS (4)
  - HYPOAESTHESIA [None]
  - MALAISE [None]
  - NECK PAIN [None]
  - PARAESTHESIA [None]
